FAERS Safety Report 6217787-8 (Version None)
Quarter: 2009Q2

REPORT INFORMATION
  Report Type: 
  Country: None (occurrence: None)
  Receive Date: 20090608
  Receipt Date: 20090603
  Transmission Date: 20091009
  Serious: Yes (Other)
  Sender: FDA-Public Use
  Company Number: US-JNJFOC-20090601715

PATIENT
  Age: 53 Year
  Sex: Male

DRUGS (4)
  1. LEVAQUIN [Suspect]
     Indication: PROSTATITIS
     Route: 048
  2. ADVIL [Concomitant]
     Indication: PAIN
     Route: 048
  3. TYLENOL (CAPLET) [Concomitant]
     Indication: PAIN
     Route: 048
  4. PRILOSEC [Concomitant]
     Indication: GASTRIC DISORDER
     Route: 048

REACTIONS (2)
  - MUSCLE TWITCHING [None]
  - NEUROPATHY PERIPHERAL [None]
